FAERS Safety Report 5162572-1 (Version None)
Quarter: 2006Q4

REPORT INFORMATION
  Report Type: 
  Country: None (occurrence: None)
  Receive Date: 20061201
  Receipt Date: 20061006
  Transmission Date: 20070319
  Serious: Yes (Other)
  Sender: FDA-Public Use
  Company Number: PHRM2006FR02830

PATIENT
  Age: 81 Year

DRUGS (3)
  1. NEORAL [Suspect]
     Indication: HEART TRANSPLANT
     Dosage: 20 MG PER DAY
     Route: 048
     Dates: start: 19930101
  2. SOLUPRED [Suspect]
     Indication: HEART TRANSPLANT
  3. CERTICAN [Suspect]
     Indication: HEART TRANSPLANT
     Dosage: 50 MG DAILY
     Route: 048
     Dates: start: 20060401

REACTIONS (3)
  - IMPAIRED HEALING [None]
  - OEDEMA PERIPHERAL [None]
  - SQUAMOUS CELL CARCINOMA [None]
